FAERS Safety Report 5126494-4 (Version None)
Quarter: 2006Q4

REPORT INFORMATION
  Report Type: 
  Country: None (occurrence: None)
  Receive Date: 20061010
  Receipt Date: 20060927
  Transmission Date: 20070319
  Serious: Yes (Death)
  Sender: FDA-Public Use
  Company Number: 06H-163-0310539-00

PATIENT
  Age: 46 Year
  Sex: Male

DRUGS (5)
  1. DIAZEPAM [Suspect]
     Indication: DRUG USE FOR UNKNOWN INDICATION
  2. QUETIAPINE FUMARATE [Suspect]
     Indication: DRUG USE FOR UNKNOWN INDICATION
  3. METHADONE (PHENYTOIN SODIUM INJECTION) (METHADONE) [Suspect]
     Indication: DRUG USE FOR UNKNOWN INDICATION
  4. NORTRIPTYLINE (DIAZEPAM INJECTION) (NORTRIPTYLINE) [Suspect]
     Indication: DRUG USE FOR UNKNOWN INDICATION
  5. FLUOXETINE [Suspect]
     Indication: DRUG USE FOR UNKNOWN INDICATION

REACTIONS (2)
  - DRUG TOXICITY [None]
  - PULMONARY OEDEMA [None]
